FAERS Safety Report 8950948 (Version 1)
Quarter: 2012Q4

REPORT INFORMATION
  Report Type: 
  Country: GB (occurrence: GB)
  Receive Date: 20121207
  Receipt Date: 20121207
  Transmission Date: 20130627
  Serious: Yes (Disabling)
  Sender: FDA-Public Use
  Company Number: GB-WATSON-2012-21349

PATIENT
  Age: 68 Year
  Sex: Female
  Weight: 72 kg

DRUGS (4)
  1. ALENDRONATE SODIUM- (UNKNOWN) [Suspect]
     Indication: OSTEOPOROSIS
     Dosage: 1 DF, 1/week
     Route: 048
     Dates: start: 20110101
  2. CANDESARTAN CILEXETIL [Suspect]
     Indication: PROTEIN URINE
     Dosage: 8 mg, daily
     Route: 048
     Dates: start: 2008, end: 2008
  3. NOVOMIX [Concomitant]
     Indication: PRODUCT USED FOR UNKNOWN INDICATION
     Dosage: UNK,
     Route: 065
  4. LANTUS [Concomitant]
     Indication: PRODUCT USED FOR UNKNOWN INDICATION
     Dosage: UNK,
     Route: 065

REACTIONS (3)
  - Myalgia [Recovered/Resolved]
  - Muscle spasms [Recovered/Resolved]
  - Back pain [Recovered/Resolved]
